FAERS Safety Report 7960395-9 (Version None)
Quarter: 2011Q4

REPORT INFORMATION
  Report Type: 
  Country: None (occurrence: None)
  Receive Date: 20111206
  Receipt Date: 20111129
  Transmission Date: 20120403
  Serious: No
  Sender: FDA-Public Use
  Company Number: US-B.I. PHARMACEUTICALS,INC./RIDGEFIELD-2011-BP-27058BP

PATIENT
  Sex: Male

DRUGS (3)
  1. PROPRANOLOL [Concomitant]
     Indication: INTENTION TREMOR
  2. PRADAXA [Suspect]
     Indication: ATRIAL FIBRILLATION
     Dosage: 300 MG
     Route: 048
     Dates: start: 20100101
  3. TOPAMAX [Concomitant]
     Indication: INTENTION TREMOR

REACTIONS (5)
  - WEIGHT DECREASED [None]
  - DIARRHOEA [None]
  - ABDOMINAL PAIN UPPER [None]
  - FLATULENCE [None]
  - PRURITUS [None]
